FAERS Safety Report 6832187-5 (Version None)
Quarter: 2010Q3

REPORT INFORMATION
  Report Type: 
  Country: None (occurrence: None)
  Receive Date: 20100712
  Receipt Date: 20100705
  Transmission Date: 20110219
  Serious: Yes (Death, Life-Threatening, Hospitalization, Other)
  Sender: FDA-Public Use
  Company Number: PHHO2005JP01330

PATIENT
  Sex: Female
  Weight: 71 kg

DRUGS (24)
  1. GLEEVEC [Suspect]
     Indication: CHRONIC MYELOID LEUKAEMIA
     Dosage: 200 MG / DAY
     Route: 048
     Dates: start: 20030802, end: 20030804
  2. GLEEVEC [Suspect]
     Dosage: 400 MG /DAY
     Route: 048
     Dates: start: 20030805, end: 20030825
  3. GLEEVEC [Suspect]
     Dosage: 300 MG / DAY
     Route: 048
     Dates: start: 20030826, end: 20030916
  4. GLEEVEC [Suspect]
     Dosage: 400 MG /DAY
     Route: 048
     Dates: start: 20030917, end: 20031114
  5. GLEEVEC [Suspect]
     Dosage: 600 MG/ DAY
     Route: 048
     Dates: start: 20031115, end: 20031226
  6. GLEEVEC [Suspect]
     Dosage: 500 MG / DAY
     Route: 048
     Dates: start: 20031227, end: 20040528
  7. GLEEVEC [Suspect]
     Dosage: 400 MG/ DAY
     Route: 048
     Dates: start: 20040529, end: 20040618
  8. GLEEVEC [Suspect]
     Dosage: 300 MG /DAY
     Route: 048
     Dates: start: 20040619, end: 20050909
  9. GLEEVEC [Suspect]
     Dosage: 400 MG, UNK
     Route: 048
     Dates: start: 20050910, end: 20050916
  10. GLEEVEC [Suspect]
     Dosage: 400 MG/ DAY
     Route: 048
     Dates: start: 20050917, end: 20051008
  11. GLEEVEC [Suspect]
     Dosage: 400 MG / DAY
     Route: 048
     Dates: start: 20051009, end: 20051021
  12. GLEEVEC [Suspect]
     Dosage: 400 MG / DAY
     Route: 048
     Dates: start: 20051022, end: 20051221
  13. GLEEVEC [Suspect]
     Dosage: 400 MG / DAY
     Route: 048
     Dates: start: 20051222
  14. GLEEVEC [Suspect]
     Dosage: 400 MG / DAY
     Route: 048
     Dates: start: 20070202, end: 20070614
  15. GLEEVEC [Suspect]
     Dosage: 500 MG / DAY
     Route: 048
     Dates: start: 20070615, end: 20070809
  16. GLEEVEC [Suspect]
     Dosage: 300 MG / DAY
     Route: 048
     Dates: start: 20070810, end: 20070925
  17. ALLOPURINOL [Concomitant]
     Route: 048
     Dates: start: 20030805, end: 20030808
  18. ALLEGRA [Concomitant]
     Dates: start: 20040703, end: 20040709
  19. PL GRAN. [Concomitant]
     Dates: start: 20040703, end: 20040709
  20. SELBEX [Concomitant]
  21. CYLOCIDE [Concomitant]
     Indication: CHRONIC MYELOID LEUKAEMIA
     Dosage: 2800 MG, UNK
     Route: 042
     Dates: start: 20070807, end: 20070811
  22. NOVANTRONE [Concomitant]
     Indication: CHRONIC MYELOID LEUKAEMIA
     Dosage: 6 MG, UNK
     Route: 042
     Dates: start: 20070807, end: 20070809
  23. RAMELTEON [Concomitant]
     Indication: PROPHYLAXIS
     Dosage: UNK
     Route: 042
     Dates: start: 20070807, end: 20070811
  24. PREDONINE [Concomitant]
     Indication: PROPHYLAXIS
     Dosage: 50 MG, UNK
     Dates: start: 20070807, end: 20070811

REACTIONS (30)
  - BASOPHIL COUNT INCREASED [None]
  - BLAST CRISIS IN MYELOGENOUS LEUKAEMIA [None]
  - BLOOD ALKALINE PHOSPHATASE DECREASED [None]
  - BLOOD LACTATE DEHYDROGENASE INCREASED [None]
  - BLOOD URIC ACID INCREASED [None]
  - DYSPHAGIA [None]
  - EOSINOPHIL COUNT INCREASED [None]
  - EPIGASTRIC DISCOMFORT [None]
  - FEELING HOT [None]
  - GAMMA-GLUTAMYLTRANSFERASE INCREASED [None]
  - HAEMATOCRIT DECREASED [None]
  - HAEMOGLOBIN DECREASED [None]
  - LYMPHOCYTE COUNT DECREASED [None]
  - LYMPHOCYTE COUNT INCREASED [None]
  - MALAISE [None]
  - MONOCYTE COUNT DECREASED [None]
  - MOUTH HAEMORRHAGE [None]
  - MOUTH ULCERATION [None]
  - MUCOUS MEMBRANE DISORDER [None]
  - NEUTROPHIL COUNT DECREASED [None]
  - OROPHARYNGEAL PAIN [None]
  - PALPITATIONS [None]
  - PLATELET COUNT DECREASED [None]
  - PYREXIA [None]
  - RED BLOOD CELL COUNT DECREASED [None]
  - RHINORRHOEA [None]
  - STOMATITIS [None]
  - URTICARIA [None]
  - VIRAL INFECTION [None]
  - WHITE BLOOD CELL COUNT DECREASED [None]
